FAERS Safety Report 6809225-9 (Version None)
Quarter: 2010Q2

REPORT INFORMATION
  Report Type: 
  Country: None (occurrence: None)
  Receive Date: 20100630
  Receipt Date: 20100621
  Transmission Date: 20101027
  Serious: No
  Sender: FDA-Public Use
  Company Number: 2008BI015963

PATIENT
  Age: 47 Year
  Sex: Male

DRUGS (21)
  1. TYSABRI [Suspect]
     Indication: MULTIPLE SCLEROSIS
     Route: 042
     Dates: start: 20071227
  2. NEURONTIN [Concomitant]
     Indication: NEURALGIA
     Dates: start: 20031212
  3. ADVAIR DISKUS 100/50 [Concomitant]
     Indication: ASTHMA
     Dates: start: 20031201
  4. FLONASE [Concomitant]
     Indication: RHINITIS
     Dates: start: 20000101
  5. AMBIEN [Concomitant]
     Indication: INSOMNIA
     Dates: start: 20050101
  6. MIRALAX [Concomitant]
     Indication: CONSTIPATION
     Dates: start: 19980101
  7. MIRALAX [Concomitant]
     Indication: GASTROINTESTINAL HYPOMOTILITY
     Dates: start: 19980101
  8. CLARITIN [Concomitant]
     Indication: SEASONAL ALLERGY
     Dates: start: 19900101
  9. GABAPENTIN [Concomitant]
     Indication: NEURALGIA
  10. DOCUSATE [Concomitant]
     Indication: GASTROINTESTINAL HYPOMOTILITY
     Dates: start: 19980101
  11. DOCUSATE [Concomitant]
     Indication: CONSTIPATION
     Dates: start: 19980101
  12. SENNA [Concomitant]
     Indication: GASTROINTESTINAL HYPOMOTILITY
     Dates: start: 19980101
  13. SENNA [Concomitant]
     Indication: CONSTIPATION
     Dates: start: 19980101
  14. CYMBALTA [Concomitant]
     Indication: DEPRESSION
     Dates: start: 20050101
  15. BACLOFEN [Concomitant]
     Indication: MUSCLE SPASTICITY
     Dates: start: 20030101
  16. TIZANIDINE [Concomitant]
     Indication: MUSCLE SPASTICITY
     Dates: start: 20030101
  17. PRILOSEC [Concomitant]
     Indication: GASTROOESOPHAGEAL REFLUX DISEASE
     Dates: start: 20020101
  18. FLOMAX [Concomitant]
     Indication: URINARY RETENTION
     Dates: start: 20030101
  19. POTASSIUM GLUCONATE TAB [Concomitant]
  20. MULTI-VITAMIN [Concomitant]
  21. B150 COMPLEX [Concomitant]

REACTIONS (9)
  - ABDOMINAL PAIN [None]
  - ANXIETY [None]
  - BLOOD CHOLESTEROL INCREASED [None]
  - CONSTIPATION [None]
  - HYPERTENSION [None]
  - MOBILITY DECREASED [None]
  - RENAL PAIN [None]
  - TOOTH FRACTURE [None]
  - TYPE 2 DIABETES MELLITUS [None]
